FAERS Safety Report 8795992 (Version 2)
Quarter: 2012Q4

REPORT INFORMATION
  Report Type: 
  Country: US (occurrence: US)
  Receive Date: 20120920
  Receipt Date: 20120928
  Transmission Date: 20130627
  Serious: No
  Sender: FDA-Public Use
  Company Number: US-009507513-1209USA000430

PATIENT

DRUGS (1)
  1. VICTRELIS [Suspect]
     Route: 048

REACTIONS (2)
  - Treatment failure [Unknown]
  - Adverse event [Unknown]
